FAERS Safety Report 8528455-1 (Version None)
Quarter: 2012Q3

REPORT INFORMATION
  Report Type: 
  Country: None (occurrence: None)
  Receive Date: 20120723
  Receipt Date: 20120716
  Transmission Date: 20120928
  Serious: Yes (Death, Life-Threatening)
  Sender: FDA-Public Use
  Company Number: ES-009507513-1207ESP006775

PATIENT

DRUGS (6)
  1. TEMODAL [Suspect]
     Indication: GLIOBLASTOMA
     Dosage: 85 MG/M2, QD
     Route: 048
     Dates: start: 20120706, end: 20120709
  2. AVASTIN [Suspect]
     Indication: GLIOBLASTOMA
     Dosage: 10 MG/KG, UNK
     Dates: start: 20120706, end: 20120706
  3. ASPIRIN [Concomitant]
     Indication: PROPHYLAXIS
     Dosage: 100 MG, UNK
     Dates: end: 20120709
  4. INSULIN [Concomitant]
     Indication: DIABETES MELLITUS
     Dosage: 20 IU, UNK
     Dates: end: 20120709
  5. METFORMIN HYDROCHLORIDE [Concomitant]
     Indication: DIABETES MELLITUS
     Dosage: UNK
     Dates: end: 20120709
  6. ENALAPRIL MALEATE [Concomitant]
     Indication: HYPERTENSION
     Dosage: 5 MG, UNK
     Dates: end: 20120709

REACTIONS (1)
  - CENTRAL NERVOUS SYSTEM HAEMORRHAGE [None]
